FAERS Safety Report 6423705-X (Version None)
Quarter: 2009Q4

REPORT INFORMATION
  Report Type: 
  Country: None (occurrence: None)
  Receive Date: 20091028
  Receipt Date: 20091012
  Transmission Date: 20100525
  Serious: Yes (Life-Threatening, Hospitalization)
  Sender: FDA-Public Use
  Company Number: ACO_00584_2009

PATIENT
  Age: 35 Year
  Sex: Female

DRUGS (3)
  1. TIZANIDINE HYDROCHLORIDE [Suspect]
     Indication: MIGRAINE
     Dosage: (26 MG 1X, [NOT THE PRESCRIBED AMOUNT] ORAL), (34 MG 1X, [NOT THE PRESCRIBED AMOUNT] ORAL)
     Route: 048
     Dates: start: 20090707, end: 20090707
  2. DEPAS (DEPAS - ETIZOLAM) (NOT SPECIFIED) [Suspect]
     Indication: DRUG USE FOR UNKNOWN INDICATION
     Dosage: (40 DF 1X, [NOT THE PRESCRIBED AMOUNT] ORAL)
     Route: 048
     Dates: start: 20090707, end: 20090707
  3. NSAID'S (NONSTEROID ANTI-INFLAMMATORY DRUGS) [Suspect]
     Indication: DRUG USE FOR UNKNOWN INDICATION
     Dosage: (DF ORAL)
     Route: 048
     Dates: start: 20090707, end: 20090707

REACTIONS (5)
  - AGGRESSION [None]
  - ALTERED STATE OF CONSCIOUSNESS [None]
  - MULTIPLE DRUG OVERDOSE [None]
  - MULTIPLE DRUG OVERDOSE INTENTIONAL [None]
  - SUICIDE ATTEMPT [None]
